FAERS Safety Report 4400483-7 (Version None)
Quarter: 2004Q3

REPORT INFORMATION
  Report Type: 
  Country: None (occurrence: None)
  Receive Date: 20040714
  Receipt Date: 20040629
  Transmission Date: 20050211
  Serious: Yes (Other)
  Sender: FDA-Public Use
  Company Number: USA031254756

PATIENT
  Age: 61 Year
  Sex: Female

DRUGS (1)
  1. FORTEO [Suspect]
     Indication: OSTEOPOROSIS
     Dosage: 20 UG/1 DAY
     Dates: start: 20031201, end: 20040406

REACTIONS (16)
  - ASTHENIA [None]
  - BUTTOCK PAIN [None]
  - DEVICE FAILURE [None]
  - DIFFICULTY IN WALKING [None]
  - FEELING ABNORMAL [None]
  - HERPES ZOSTER [None]
  - INJECTION SITE PAIN [None]
  - MEDICATION ERROR [None]
  - OVERDOSE [None]
  - PAIN IN EXTREMITY [None]
  - PHARMACEUTICAL PRODUCT COMPLAINT [None]
  - PIGMENTED NAEVUS [None]
  - POST PROCEDURAL COMPLICATION [None]
  - RASH ERYTHEMATOUS [None]
  - RASH MACULAR [None]
  - SUTURE RELATED COMPLICATION [None]
